FAERS Safety Report 4466652-5 (Version None)
Quarter: 2004Q4

REPORT INFORMATION
  Report Type: 
  Country: None (occurrence: None)
  Receive Date: 20041001
  Receipt Date: 20041001
  Transmission Date: 20050328
  Serious: Yes (Life-Threatening, Hospitalization)
  Sender: FDA-Public Use
  Company Number: None

PATIENT
  Age: 69 Year
  Sex: Male
  Weight: 81.6475 kg

DRUGS (1)
  1. VIOXX [Suspect]
     Indication: ARTHRITIS
     Dosage: 25 MG  DAILY  ORAL
     Route: 048
     Dates: start: 19991001, end: 20010208

REACTIONS (2)
  - CARDIAC FAILURE CONGESTIVE [None]
  - CORONARY ARTERY SURGERY [None]
